FAERS Safety Report 5332378-9 (Version None)
Quarter: 2007Q2

REPORT INFORMATION
  Report Type: 
  Country: None (occurrence: None)
  Receive Date: 20070523
  Receipt Date: 20070518
  Transmission Date: 20071010
  Serious: Yes (Hospitalization)
  Sender: FDA-Public Use
  Company Number: B0470038A

PATIENT
  Age: 85 Year
  Sex: Female

DRUGS (8)
  1. VALTREX [Suspect]
     Indication: HERPES ZOSTER
     Dosage: 1G THREE TIMES PER DAY
     Route: 048
     Dates: start: 20070426, end: 20070430
  2. ARASENA-A [Concomitant]
     Indication: HERPES ZOSTER
     Route: 061
  3. RENIVACE [Concomitant]
     Indication: HYPERTENSION
     Dosage: 5MG PER DAY
     Route: 048
     Dates: end: 20070430
  4. URSO 250 [Concomitant]
     Indication: CHOLELITHIASIS
     Dosage: 600MG PER DAY
     Route: 048
     Dates: end: 20070430
  5. ADALAT [Concomitant]
     Indication: HYPERTENSION
     Dosage: 20MG PER DAY
     Route: 048
     Dates: end: 20070430
  6. GRAMALIL [Concomitant]
     Indication: CEREBRAL INFARCTION
     Dosage: 50MG PER DAY
     Route: 048
  7. TAKEPRON [Concomitant]
  8. ADALAT [Concomitant]
     Dosage: 20MG PER DAY
     Route: 048
     Dates: start: 20070504

REACTIONS (5)
  - ALTERED STATE OF CONSCIOUSNESS [None]
  - APHASIA [None]
  - DYSPHAGIA [None]
  - RENAL FAILURE ACUTE [None]
  - SOMNOLENCE [None]
